FAERS Safety Report 23289148 (Version 3)
Quarter: 2024Q1

REPORT INFORMATION
  Report Type: Report from Study
  Country: CA (occurrence: CA)
  Receive Date: 20231212
  Receipt Date: 20240223
  Transmission Date: 20240409
  Serious: Yes (Other)
  Sender: FDA-Public Use
  Company Number: CA-JNJFOC-20231119162

PATIENT
  Age: 43 Year
  Sex: Female

DRUGS (4)
  1. SIMPONI [Suspect]
     Active Substance: GOLIMUMAB
     Indication: Ankylosing spondylitis
     Route: 058
     Dates: start: 20231005
  2. SIMPONI [Suspect]
     Active Substance: GOLIMUMAB
     Route: 058
     Dates: start: 20231005
  3. SIMPONI [Suspect]
     Active Substance: GOLIMUMAB
     Route: 058
     Dates: start: 20231005
  4. SIMPONI [Suspect]
     Active Substance: GOLIMUMAB
     Route: 058
     Dates: start: 20231005

REACTIONS (10)
  - Skin papilloma [Not Recovered/Not Resolved]
  - Pruritus [Not Recovered/Not Resolved]
  - Ear infection [Not Recovered/Not Resolved]
  - Hepatic enzyme increased [Not Recovered/Not Resolved]
  - Nausea [Not Recovered/Not Resolved]
  - Osteoarthritis [Not Recovered/Not Resolved]
  - Chondropathy [Not Recovered/Not Resolved]
  - Epistaxis [Not Recovered/Not Resolved]
  - Breast mass [Not Recovered/Not Resolved]
  - Cranial nerve disorder [Not Recovered/Not Resolved]

NARRATIVE: CASE EVENT DATE: 20231006
